FAERS Safety Report 10483885 (Version 1)
Quarter: 2014Q3

REPORT INFORMATION
  Report Type: Spontaneous
  Country: IT (occurrence: IT)
  Receive Date: 20140930
  Receipt Date: 20140930
  Transmission Date: 20150326
  Serious: Yes (Hospitalization)
  Sender: FDA-Public Use
  Company Number: IT-TEVA-511456ISR

PATIENT
  Age: 66 Year
  Sex: Male
  Weight: 69 kg

DRUGS (3)
  1. CISPLATIN. [Suspect]
     Active Substance: CISPLATIN
     Indication: LUNG ADENOCARCINOMA
     Dosage: 60 MG/M2 CYCLICAL
     Route: 042
     Dates: start: 20140516, end: 20140516
  2. ALIMTA [Suspect]
     Active Substance: PEMETREXED DISODIUM
     Indication: LUNG ADENOCARCINOMA
     Dosage: 400 MG/M2 CYCLICAL
     Route: 042
     Dates: start: 20140516, end: 20140516
  3. ALIMTA [Suspect]
     Active Substance: PEMETREXED DISODIUM
     Indication: LUNG ADENOCARCINOMA
     Dosage: 400 MG/M2 CYCLICAL
     Route: 042
     Dates: start: 20140516, end: 20140516

REACTIONS (4)
  - Pulmonary embolism [Recovered/Resolved]
  - Diverticulitis [Recovered/Resolved]
  - Pyrexia [Recovered/Resolved]
  - Lung abscess [Recovered/Resolved]

NARRATIVE: CASE EVENT DATE: 20140521
